FAERS Safety Report 5448297-3 (Version None)
Quarter: 2007Q3

REPORT INFORMATION
  Report Type: 
  Country: None (occurrence: None)
  Receive Date: 20070906
  Receipt Date: 20070906
  Transmission Date: 20080115
  Serious: Yes (Other)
  Sender: FDA-Public Use
  Company Number: None

PATIENT
  Sex: Female
  Weight: 56.6996 kg

DRUGS (1)
  1. LEVAQUIN [Suspect]
     Indication: URINARY TRACT INFECTION
     Dosage: 750 MG ONCE DAILY PO
     Route: 048
     Dates: start: 20070730, end: 20070808

REACTIONS (4)
  - ARTHRALGIA [None]
  - ASTHENIA [None]
  - ILL-DEFINED DISORDER [None]
  - MUSCULOSKELETAL STIFFNESS [None]
